FAERS Safety Report 5360467-1 (Version None)
Quarter: 2007Q2

REPORT INFORMATION
  Report Type: 
  Country: None (occurrence: None)
  Receive Date: 20070618
  Receipt Date: 20070607
  Transmission Date: 20071010
  Serious: Yes (Hospitalization)
  Sender: FDA-Public Use
  Company Number: US-JNJFOC-20070602345

PATIENT
  Sex: Female
  Weight: 48.08 kg

DRUGS (3)
  1. FENTANYL TRANSDERMAL SYSTEM [Suspect]
     Indication: PAIN
     Route: 062
  2. RYTHMOL [Concomitant]
     Route: 065
  3. TOPROL-XL [Concomitant]
     Route: 065

REACTIONS (3)
  - DRUG DOSE OMISSION [None]
  - HEART RATE INCREASED [None]
  - MUSCLE SPASMS [None]
